FAERS Safety Report 21381971 (Version 1)
Quarter: 2022Q3

REPORT INFORMATION
  Report Type: Spontaneous
  Country: US (occurrence: US)
  Receive Date: 20220927
  Receipt Date: 20220927
  Transmission Date: 20221027
  Serious: No
  Sender: FDA-Public Use
  Company Number: US-MYLANLABS-2022M1096388

PATIENT
  Sex: Female
  Weight: 67.13 kg

DRUGS (1)
  1. ESTRADIOL TRANSDERMAL SYSTEM [Suspect]
     Active Substance: ESTRADIOL
     Indication: Hormone therapy
     Dosage: 0.025 MILLIGRAM, QD (0.025 MG ONCE A WEEK)
     Route: 062

REACTIONS (2)
  - Rubber sensitivity [Unknown]
  - Rash [Unknown]
